FAERS Safety Report 7834247-9 (Version None)
Quarter: 2011Q4

REPORT INFORMATION
  Report Type: 
  Country: None (occurrence: None)
  Receive Date: 20111024
  Receipt Date: 20111017
  Transmission Date: 20120403
  Serious: Yes (Other)
  Sender: FDA-Public Use
  Company Number: PHEH2010US03494

PATIENT
  Sex: Male

DRUGS (18)
  1. NEULASTA [Concomitant]
     Dosage: 6 MG
     Route: 058
  2. SIMVASTATIN [Concomitant]
  3. PERCOCET [Concomitant]
  4. LUPRON [Concomitant]
     Dates: start: 20100420
  5. ZOMETA [Suspect]
     Dosage: 4 MG, MONTHLY
     Dates: start: 20060301, end: 20090301
  6. PREDNISONE [Concomitant]
  7. PEPCID [Concomitant]
  8. LUNESTA [Concomitant]
  9. METOPROLOL TARTRATE [Concomitant]
  10. ASPIRIN [Concomitant]
  11. PERIDEX [Concomitant]
  12. PEN-VEE K [Concomitant]
  13. DARVOCET-N 50 [Concomitant]
  14. AMOXICILLIN [Concomitant]
  15. TRELSTAR [Concomitant]
  16. ALOXI [Concomitant]
     Dosage: 0.25 MG,
  17. TAXOTERE [Concomitant]
     Dosage: 140 MG,
  18. DICLOFENAC [Concomitant]

REACTIONS (34)
  - DISABILITY [None]
  - PARAESTHESIA [None]
  - MYOCARDIAL INFARCTION [None]
  - LEFT ATRIAL DILATATION [None]
  - TRICUSPID VALVE INCOMPETENCE [None]
  - LYMPHADENOPATHY MEDIASTINAL [None]
  - BACK PAIN [None]
  - SKIN CANCER [None]
  - ACTINIC KERATOSIS [None]
  - ANXIETY [None]
  - ANHEDONIA [None]
  - PULMONARY EMBOLISM [None]
  - PAIN IN EXTREMITY [None]
  - INTERVERTEBRAL DISC DEGENERATION [None]
  - DYSPNOEA [None]
  - HAEMORRHOIDS [None]
  - OSTEONECROSIS OF JAW [None]
  - ANAEMIA [None]
  - MITRAL VALVE INCOMPETENCE [None]
  - INJURY [None]
  - OEDEMA PERIPHERAL [None]
  - AORTIC ARTERIOSCLEROSIS [None]
  - INTERVERTEBRAL DISC PROTRUSION [None]
  - NEUTROPENIA [None]
  - PAIN [None]
  - ROTATOR CUFF SYNDROME [None]
  - CHEST PAIN [None]
  - HILAR LYMPHADENOPATHY [None]
  - OSTEOARTHRITIS [None]
  - PATHOLOGICAL FRACTURE [None]
  - MUSCULOSKELETAL PAIN [None]
  - ERECTILE DYSFUNCTION [None]
  - NEOPLASM MALIGNANT [None]
  - HYPERCHOLESTEROLAEMIA [None]
